FAERS Safety Report 6825823-0 (Version None)
Quarter: 2010Q3

REPORT INFORMATION
  Report Type: 
  Country: None (occurrence: None)
  Receive Date: 20100708
  Receipt Date: 20100708
  Transmission Date: 20110219
  Serious: No
  Sender: FDA-Public Use
  Company Number: None

PATIENT
  Age: 61 Year
  Sex: Female
  Weight: 72.7 kg

DRUGS (1)
  1. DESYREL [Suspect]
     Indication: DEPRESSION
     Dosage: 150MG DAILY ORAL
     Route: 048
     Dates: start: 20100627

REACTIONS (4)
  - CHOKING [None]
  - DYSPHAGIA [None]
  - TABLET ISSUE [None]
  - WRONG TECHNIQUE IN DRUG USAGE PROCESS [None]
